FAERS Safety Report 8573260-3 (Version None)
Quarter: 2012Q3

REPORT INFORMATION
  Report Type: 
  Country: None (occurrence: None)
  Receive Date: 20120806
  Receipt Date: 20120730
  Transmission Date: 20120928
  Serious: Yes (Hospitalization, Other)
  Sender: FDA-Public Use
  Company Number: BR-ROCHE-1095154

PATIENT
  Sex: Male
  Weight: 67 kg

DRUGS (3)
  1. MABTHERA [Suspect]
     Indication: RHEUMATOID ARTHRITIS
     Dates: start: 20101101
  2. MABTHERA [Suspect]
     Dates: start: 20120101
  3. METICORTEN [Concomitant]

REACTIONS (3)
  - THROMBOSIS [None]
  - MUSCLE STRAIN [None]
  - INFECTION [None]
